FAERS Safety Report 9350545 (Version 1)
Quarter: 2013Q2

REPORT INFORMATION
  Report Type: Spontaneous
  Country: US (occurrence: US)
  Receive Date: 20130617
  Receipt Date: 20130617
  Transmission Date: 20140414
  Serious: No
  Sender: FDA-Public Use
  Company Number: US-PFIZER INC-2013178268

PATIENT
  Age: 57 Year
  Sex: Female

DRUGS (6)
  1. SKELAXIN [Suspect]
     Dosage: UNK
  2. CARAFATE [Suspect]
     Dosage: UNK
  3. ENTEX [Suspect]
     Dosage: UNK
  4. PRILOSEC [Suspect]
     Dosage: UNK
  5. REGLAN [Suspect]
     Dosage: UNK
  6. TYLOX [Suspect]
     Dosage: UNK

REACTIONS (1)
  - Drug hypersensitivity [Unknown]
